FAERS Safety Report 9213544 (Version 2)
Quarter: 2013Q4

REPORT INFORMATION
  Report Type: Spontaneous
  Country: US (occurrence: US)
  Receive Date: 20130405
  Receipt Date: 20131216
  Transmission Date: 20140711
  Serious: Yes (Other)
  Sender: FDA-Public Use
  Company Number: US-BAYER-2013-040672

PATIENT
  Age: 30 Year
  Sex: Female

DRUGS (9)
  1. YAZ [Suspect]
     Dosage: UNK
     Dates: start: 20090303
  2. YASMIN [Suspect]
     Dosage: UNK
     Dates: start: 20090303
  3. OCELLA [Suspect]
     Dosage: UNK
     Dates: start: 20090303
  4. GIANVI [Suspect]
     Dosage: UNK
     Dates: start: 20090303
  5. COMBIVENT [Concomitant]
     Indication: ASTHMA
  6. AMOXICILLIN [Concomitant]
     Indication: BRONCHITIS
  7. ALBUTEROL [Concomitant]
  8. PEPCID [Concomitant]
  9. HEPARIN [Concomitant]

REACTIONS (8)
  - Gallbladder injury [None]
  - Cholecystitis chronic [None]
  - Injury [None]
  - Pain [None]
  - General physical health deterioration [None]
  - Emotional distress [None]
  - Anxiety [None]
  - Pain [None]
